FAERS Safety Report 8757264 (Version 2)
Quarter: 2013Q4

REPORT INFORMATION
  Report Type: Report from Study
  Country: US (occurrence: US)
  Receive Date: 20120828
  Receipt Date: 20131101
  Transmission Date: 20140711
  Serious: No
  Sender: FDA-Public Use
  Company Number: US-009507513-1207USA010931

PATIENT
  Sex: 0

DRUGS (3)
  1. BLINDED ETONOGESTREL IMPLANT- IMPLANON NEXT [Suspect]
     Dosage: 68 MG, UNK
     Route: 058
     Dates: start: 20120507
  2. BLINDED POST TRIAL THERAPY [Suspect]
     Dosage: 68 MG, UNK
     Route: 058
     Dates: start: 20120507
  3. BLINDED PRE TRIAL THERAPY [Suspect]
     Dosage: 68 MG, UNK
     Route: 058
     Dates: start: 20120507

REACTIONS (2)
  - Device difficult to use [Unknown]
  - No adverse event [Unknown]
